FAERS Safety Report 9677514 (Version 2)
Quarter: 2013Q4

REPORT INFORMATION
  Report Type: Report from Study
  Country: GR (occurrence: GR)
  Receive Date: 20131108
  Receipt Date: 20131226
  Transmission Date: 20140711
  Serious: Yes (Hospitalization)
  Sender: FDA-Public Use
  Company Number: PHHY2013GR125272

PATIENT
  Age: 44 Year
  Sex: Male
  Weight: 76 kg

DRUGS (1)
  1. FTY 720 [Suspect]
     Indication: MULTIPLE SCLEROSIS
     Dosage: 0.5 MG, QD
     Route: 048
     Dates: start: 20131101, end: 20131102

REACTIONS (4)
  - Pyrexia [Recovered/Resolved]
  - Gait disturbance [Recovered/Resolved]
  - General physical health deterioration [Recovered/Resolved]
  - Lymphocyte count decreased [Recovering/Resolving]
